FAERS Safety Report 5957115 (Version 2)
Quarter: 2019Q1

REPORT INFORMATION
  Report Type: Spontaneous
  Country: FR (occurrence: FR)
  Receive Date: 20060109
  Receipt Date: 20190125
  Transmission Date: 20190418
  Serious: Yes (Hospitalization, Other)
  Sender: FDA-Public Use
  Company Number: FR-GLAXOSMITHKLINE-B0405692A

PATIENT
  Age: 95 Year
  Sex: Male
  Weight: 52 kg

DRUGS (11)
  1. KAYEXALATE [Concomitant]
     Active Substance: SODIUM POLYSTYRENE SULFONATE
     Route: 065
  2. ZYLORIC [Concomitant]
     Active Substance: ALLOPURINOL
     Route: 048
  3. AUGMENTIN [Suspect]
     Active Substance: AMOXICILLIN\CLAVULANATE POTASSIUM
     Indication: OSTEOARTHRITIS
     Route: 048
     Dates: start: 20051107
  4. LASILIX [Concomitant]
     Active Substance: FUROSEMIDE
     Route: 048
  5. LAROXYL [Concomitant]
     Active Substance: AMITRIPTYLINE HYDROCHLORIDE
     Route: 048
  6. COLCHIMAX [Concomitant]
     Route: 065
  7. CIFLOX [Interacting]
     Active Substance: CIPROFLOXACIN
     Indication: OSTEOARTHRITIS
     Route: 048
     Dates: start: 20051107
  8. TRIATEC [Concomitant]
     Route: 048
  9. NITRIDERM [Concomitant]
     Active Substance: NITROGLYCERIN
     Route: 048
  10. VITAMIN B12 [Concomitant]
     Active Substance: CYANOCOBALAMIN
     Route: 065
  11. PREVISCAN (FLUINDIONE) [Interacting]
     Active Substance: FLUINDIONE
     Indication: UNEVALUABLE EVENT
     Route: 048
     Dates: end: 20051114

REACTIONS (4)
  - Prothrombin time shortened [Recovered/Resolved]
  - Subdural haematoma [Recovered/Resolved]
  - Drug interaction [Unknown]
  - International normalised ratio increased [Recovered/Resolved]

NARRATIVE: CASE EVENT DATE: 20051113
